FAERS Safety Report 23987448 (Version 2)
Quarter: 2024Q3

REPORT INFORMATION
  Report Type: Report from Study
  Country: DE (occurrence: DE)
  Receive Date: 20240618
  Receipt Date: 20240711
  Transmission Date: 20241017
  Serious: No
  Sender: CSL BEHRING
  Company Number: DE-BEH-2024173632

PATIENT
  Age: 89 Year
  Sex: Male
  Weight: 85 kg

DRUGS (12)
  1. PRIVIGEN [Suspect]
     Active Substance: HUMAN IMMUNOGLOBULIN G
     Indication: Mantle cell lymphoma
     Dosage: 10 G
     Route: 042
     Dates: start: 20240108
  2. PRIVIGEN [Suspect]
     Active Substance: HUMAN IMMUNOGLOBULIN G
     Indication: Squamous cell carcinoma of skin
     Dosage: 10 G
     Route: 042
     Dates: start: 20240201
  3. PRIVIGEN [Suspect]
     Active Substance: HUMAN IMMUNOGLOBULIN G
     Dosage: 10 G
     Route: 042
     Dates: start: 20240229
  4. PRIVIGEN [Suspect]
     Active Substance: HUMAN IMMUNOGLOBULIN G
     Dosage: 10 G, TOT
     Route: 042
     Dates: start: 20240328
  5. EDOXABAN [Concomitant]
     Active Substance: EDOXABAN
  6. DAPAGLIFLOZIN [Concomitant]
     Active Substance: DAPAGLIFLOZIN
  7. METOPROLOL SUCCINATE [Concomitant]
     Active Substance: METOPROLOL SUCCINATE
  8. DIGITOXIN [Concomitant]
     Active Substance: DIGITOXIN
  9. ATORVASTATIN [Concomitant]
     Active Substance: ATORVASTATIN
  10. FLUTICASONE FUROATE\VILANTEROL TRIFENATATE [Concomitant]
     Active Substance: FLUTICASONE FUROATE\VILANTEROL TRIFENATATE
  11. CYANOCOBALAMIN [Concomitant]
     Active Substance: CYANOCOBALAMIN
  12. VITAMIN D3 [Concomitant]
     Active Substance: CHOLECALCIFEROL

REACTIONS (2)
  - Sepsis [Fatal]
  - Off label use [Unknown]

NARRATIVE: CASE EVENT DATE: 20240526
